FAERS Safety Report 10404624 (Version 1)
Quarter: 2014Q2

REPORT INFORMATION
  Report Type: Spontaneous
  Country: US (occurrence: None)
  Receive Date: 20140603
  Receipt Date: 20140603
  Transmission Date: 20141212
  Serious: Yes (Other)
  Sender: FDA-Public Use
  Company Number: FK201301914

PATIENT
  Age: 62 Year
  Sex: Male

DRUGS (2)
  1. PROTAMINE SULFATE INJECTION, USP (PROTAMINE SULFATE) (PROTAMINE SULFATE) [Suspect]
     Indication: HEPARIN NEUTRALISATION THERAPY
     Dates: start: 20130531, end: 20130531
  2. HEPARIN (HEPARIN) [Concomitant]

REACTIONS (1)
  - Drug ineffective [None]
